FAERS Safety Report 18481632 (Version 1)
Quarter: 2020Q4

REPORT INFORMATION
  Report Type: Spontaneous
  Country: IT (occurrence: IT)
  Receive Date: 20201109
  Receipt Date: 20201109
  Transmission Date: 20210114
  Serious: Yes (Other)
  Sender: FDA-Public Use
  Company Number: IT-MYLANLABS-2020M1093277

PATIENT
  Age: 45 Year
  Sex: Female

DRUGS (5)
  1. PACLITAXEL. [Suspect]
     Active Substance: PACLITAXEL
     Indication: EXTRAMAMMARY PAGET^S DISEASE
     Dosage: 80 MILLIGRAM/SQ. METER, QW
     Route: 065
     Dates: start: 201511
  2. PACLITAXEL. [Suspect]
     Active Substance: PACLITAXEL
     Dosage: ACTION TAKEN UNKNOWN FOR REMAINING ADRS
     Route: 065
  3. TRASTUZUMAB. [Suspect]
     Active Substance: TRASTUZUMAB
     Indication: EXTRAMAMMARY PAGET^S DISEASE
     Dosage: LOADING DOSE 4 MG/KG; THEREAFTER, 2 MG/KG
     Route: 065
     Dates: start: 201511
  4. PACLITAXEL. [Suspect]
     Active Substance: PACLITAXEL
     Indication: PAGET^S DISEASE OF THE VULVA
     Dosage: DOSE REDUCED TO 80% IN MAY 2016
     Route: 065
     Dates: start: 201605
  5. TRASTUZUMAB. [Suspect]
     Active Substance: TRASTUZUMAB
     Indication: PAGET^S DISEASE OF THE VULVA

REACTIONS (5)
  - Neuropathy peripheral [Unknown]
  - Skin discolouration [Unknown]
  - Off label use [Unknown]
  - Neutropenia [Unknown]
  - Alopecia [Unknown]
